FAERS Safety Report 18308092 (Version 2)
Quarter: 2020Q4

REPORT INFORMATION
  Report Type: Spontaneous
  Country: US (occurrence: US)
  Receive Date: 20200924
  Receipt Date: 20201218
  Transmission Date: 20210113
  Serious: No
  Sender: FDA-Public Use
  Company Number: US-JNJFOC-20200918285

PATIENT
  Age: 53 Year
  Sex: Female

DRUGS (2)
  1. TYLENOL [Suspect]
     Active Substance: ACETAMINOPHEN
     Indication: PRODUCT USED FOR UNKNOWN INDICATION
     Route: 065
  2. HUMIRA [Suspect]
     Active Substance: ADALIMUMAB
     Indication: PSORIATIC ARTHROPATHY
     Dosage: 40MG/0.4ML(40 MILLIGRAM, SOLUTION FOR INJECTION IN PRE-FILLED PEN)
     Route: 058
     Dates: start: 20190910

REACTIONS (16)
  - Joint swelling [Recovering/Resolving]
  - Osteoarthritis [Unknown]
  - Joint stiffness [Not Recovered/Not Resolved]
  - Liver function test abnormal [Unknown]
  - Grip strength decreased [Unknown]
  - Skin plaque [Recovering/Resolving]
  - Pain [Recovering/Resolving]
  - Nasopharyngitis [Recovered/Resolved]
  - Loss of personal independence in daily activities [Recovering/Resolving]
  - Gait disturbance [Not Recovered/Not Resolved]
  - Pain in extremity [Recovering/Resolving]
  - Weight increased [Unknown]
  - Arthralgia [Recovering/Resolving]
  - Depression [Unknown]
  - Fatigue [Recovering/Resolving]
  - Anxiety [Recovered/Resolved]

NARRATIVE: CASE EVENT DATE: 2019
